FAERS Safety Report 7551213-1 (Version None)
Quarter: 2011Q2

REPORT INFORMATION
  Report Type: 
  Country: None (occurrence: None)
  Receive Date: 20110616
  Receipt Date: 20110603
  Transmission Date: 20111010
  Serious: Yes (Other)
  Sender: FDA-Public Use
  Company Number: PHHY2011AU49056

PATIENT
  Sex: Male

DRUGS (1)
  1. ZOLEDRONIC ACID [Suspect]
     Indication: OSTEOPOROSIS
     Dosage: 5 MG, UNK
     Route: 042
     Dates: start: 20110516

REACTIONS (8)
  - PAIN IN JAW [None]
  - TESTICULAR SWELLING [None]
  - INJECTION SITE PAIN [None]
  - BACK PAIN [None]
  - FACIAL PAIN [None]
  - RASH PAPULAR [None]
  - GAIT DISTURBANCE [None]
  - HYPERHIDROSIS [None]
